FAERS Safety Report 9663640 (Version 3)
Quarter: 2013Q4

REPORT INFORMATION
  Report Type: Spontaneous
  Country: IT (occurrence: IT)
  Receive Date: 20131101
  Receipt Date: 20131206
  Transmission Date: 20140711
  Serious: Yes (Hospitalization)
  Sender: FDA-Public Use
  Company Number: IT-ROCHE-1297707

PATIENT
  Age: 61 Year
  Sex: Male

DRUGS (9)
  1. MABTHERA [Suspect]
     Indication: B-CELL LYMPHOMA
     Route: 042
     Dates: start: 20130201, end: 20130731
  2. LEVACT (ITALY) [Suspect]
     Indication: NON-HODGKIN^S LYMPHOMA
     Route: 042
     Dates: start: 20130201, end: 20130731
  3. CARDIOASPIRIN [Concomitant]
     Route: 048
  4. UNIPRIL (ITALY) [Concomitant]
     Route: 048
  5. ZYLORIC [Concomitant]
     Route: 048
  6. ESOPRAL [Concomitant]
     Route: 048
  7. PROVISACOR [Concomitant]
     Route: 048
  8. CYMBALTA [Concomitant]
     Route: 048
  9. CONGESCOR [Concomitant]

REACTIONS (1)
  - Visual impairment [Not Recovered/Not Resolved]
